FAERS Safety Report 6120858-8 (Version None)
Quarter: 2009Q1

REPORT INFORMATION
  Report Type: 
  Country: None (occurrence: None)
  Receive Date: 20090312
  Receipt Date: 20090227
  Transmission Date: 20090719
  Serious: Yes (Hospitalization)
  Sender: FDA-Public Use
  Company Number: 2008EU002965

PATIENT
  Age: 59 Year
  Sex: Male

DRUGS (2)
  1. FK506(TACROLIMUS) FORMULATION UNKNOWN [Suspect]
     Indication: LIVER TRANSPLANT
     Dosage: /D, ORAL
     Route: 048
     Dates: start: 20081010
  2. CORTICOSTEROID NOS (CORTICOSTEROID NOS) [Concomitant]

REACTIONS (2)
  - CHOLANGITIS SUPPURATIVE [None]
  - DRUG TOXICITY [None]
